FAERS Safety Report 9759992 (Version 3)
Quarter: 2015Q2

REPORT INFORMATION
  Report Type: Spontaneous
  Country: US (occurrence: US)
  Receive Date: 20131216
  Receipt Date: 20150524
  Transmission Date: 20150821
  Serious: Yes (Hospitalization)
  Sender: FDA-Public Use
  Company Number: US-JNJFOC-20131200730

PATIENT
  Age: 62 Year
  Sex: Male
  Weight: 79.38 kg

DRUGS (18)
  1. ASPIRIN. [Concomitant]
     Active Substance: ASPIRIN
     Route: 048
  2. DURAGESIC [Suspect]
     Active Substance: FENTANYL
     Indication: SPINAL CORD NEOPLASM
     Route: 062
  3. DURAGESIC [Suspect]
     Active Substance: FENTANYL
     Indication: NEUROENDOCRINE CARCINOMA
     Route: 062
     Dates: start: 2013, end: 2013
  4. LYRICA [Concomitant]
     Active Substance: PREGABALIN
     Indication: PRODUCT USED FOR UNKNOWN INDICATION
     Dosage: 2 TO 3 TIMES A DAY
     Route: 048
  5. DURAGESIC [Suspect]
     Active Substance: FENTANYL
     Indication: NEUROENDOCRINE CARCINOMA
     Route: 062
  6. HYDROCODONE [Concomitant]
     Active Substance: HYDROCODONE
     Indication: PRODUCT USED FOR UNKNOWN INDICATION
     Dosage: 5- 500 MG TABLET AS NEEDED
     Route: 048
  7. OMEPRAZOLE. [Concomitant]
     Active Substance: OMEPRAZOLE
     Route: 048
  8. FENTANYL TRANSDERMAL SYSTEM [Suspect]
     Active Substance: FENTANYL
     Indication: NEUROENDOCRINE CARCINOMA
     Route: 062
  9. DURAGESIC [Suspect]
     Active Substance: FENTANYL
     Indication: NEUROENDOCRINE CARCINOMA
     Route: 062
     Dates: end: 2013
  10. DURAGESIC [Suspect]
     Active Substance: FENTANYL
     Indication: SPINAL CORD NEOPLASM
     Route: 062
     Dates: end: 2013
  11. DURAGESIC [Suspect]
     Active Substance: FENTANYL
     Indication: SPINAL CORD NEOPLASM
     Route: 062
     Dates: start: 2013
  12. LASIX [Concomitant]
     Active Substance: FUROSEMIDE
     Indication: PERIPHERAL SWELLING
     Dosage: 1 TO 3 TIMES A DAY
     Route: 048
  13. DURAGESIC [Suspect]
     Active Substance: FENTANYL
     Indication: NEUROENDOCRINE CARCINOMA
     Route: 062
     Dates: start: 2013
  14. DURAGESIC [Suspect]
     Active Substance: FENTANYL
     Indication: SPINAL CORD NEOPLASM
     Route: 062
     Dates: start: 2013, end: 2013
  15. RANITIDINE [Concomitant]
     Active Substance: RANITIDINE\RANITIDINE HYDROCHLORIDE
     Dosage: AT BED IME
     Route: 048
  16. LASIX [Concomitant]
     Active Substance: FUROSEMIDE
     Indication: PERIPHERAL SWELLING
     Dosage: 1 TO 3 TIMES A DAY
     Route: 048
  17. FENTANYL TRANSDERMAL SYSTEM [Suspect]
     Active Substance: FENTANYL
     Indication: SPINAL CORD NEOPLASM
     Route: 062
  18. XANAX [Concomitant]
     Active Substance: ALPRAZOLAM
     Route: 048

REACTIONS (12)
  - Aspiration [Recovered/Resolved]
  - Spinal pain [Recovered/Resolved]
  - Muscle twitching [Recovered/Resolved]
  - Lethargy [Unknown]
  - Pneumonia aspiration [Recovered/Resolved]
  - Heart injury [Unknown]
  - Hypersomnia [Unknown]
  - Pain in extremity [Recovered/Resolved]
  - Septic shock [Recovered/Resolved]
  - Loss of consciousness [Recovered/Resolved]
  - Vomiting [Recovered/Resolved]
  - Flushing [Unknown]

NARRATIVE: CASE EVENT DATE: 20121211
